FAERS Safety Report 25467587 (Version 1)
Quarter: 2025Q2

REPORT INFORMATION
  Report Type: Spontaneous
  Country: US (occurrence: None)
  Receive Date: 20250621
  Receipt Date: 20250621
  Transmission Date: 20250716
  Serious: Yes (Disabling, Other)
  Sender: FDA-CTU
  Company Number: None

PATIENT
  Age: 35 Year
  Sex: Female
  Weight: 71.1 kg

DRUGS (2)
  1. NEXPLANON [Suspect]
     Active Substance: ETONOGESTREL
     Indication: Contraception
     Route: 058
     Dates: start: 20201218, end: 20230629
  2. Prenatal supplements [Concomitant]

REACTIONS (8)
  - Mood swings [None]
  - Live birth [None]
  - Stillbirth [None]
  - Umbilical cord abnormality [None]
  - Congenital fallopian tube anomaly [None]
  - Ectopic pregnancy [None]
  - Infertility female [None]
  - Fallopian tube obstruction [None]

NARRATIVE: CASE EVENT DATE: 20231217
